FAERS Safety Report 20741157 (Version 2)
Quarter: 2023Q1

REPORT INFORMATION
  Report Type: Spontaneous
  Country: US (occurrence: US)
  Receive Date: 20220422
  Receipt Date: 20230315
  Transmission Date: 20230418
  Serious: No
  Sender: FDA-Public Use
  Company Number: US-PFIZER INC-2021177567

PATIENT
  Age: 68 Year
  Sex: Female
  Weight: 48.08 kg

DRUGS (4)
  1. RUXIENCE [Suspect]
     Active Substance: RITUXIMAB-PVVR
     Indication: Chronic inflammatory demyelinating polyradiculoneuropathy
     Dosage: UNK
     Dates: start: 20210224
  2. RUXIENCE [Suspect]
     Active Substance: RITUXIMAB-PVVR
     Indication: Anti-myelin-associated glycoprotein associated polyneuropathy
     Dosage: UNK
     Dates: start: 20210310
  3. RUXIENCE [Suspect]
     Active Substance: RITUXIMAB-PVVR
     Indication: Monoclonal gammopathy
     Dosage: 1000 MG (EVERY 6 MONTHS)
     Route: 042
     Dates: start: 202103
  4. RUXIENCE [Suspect]
     Active Substance: RITUXIMAB-PVVR
     Indication: Proteinuria

REACTIONS (8)
  - Abdominal distension [Unknown]
  - Tenderness [Unknown]
  - Weight increased [Unknown]
  - Asthenia [Unknown]
  - Tremor [Unknown]
  - Fatigue [Unknown]
  - Off label use [Unknown]
  - Drug effective for unapproved indication [Unknown]
